FAERS Safety Report 5124165-1 (Version None)
Quarter: 2006Q4

REPORT INFORMATION
  Report Type: 
  Country: None (occurrence: None)
  Receive Date: 20061010
  Receipt Date: 20060605
  Transmission Date: 20070319
  Serious: No
  Sender: FDA-Public Use
  Company Number: US-BRISTOL-MYERS SQUIBB COMPANY-13401534

PATIENT
  Age: 57 Year
  Sex: Male
  Weight: 77 kg

DRUGS (7)
  1. AVAPRO [Suspect]
     Indication: HYPERTENSION
     Route: 048
     Dates: start: 20060501
  2. LIPITOR [Concomitant]
  3. NEURONTIN [Concomitant]
  4. GLUCOVANCE [Concomitant]
  5. AVANDIA [Concomitant]
  6. EQUATE [Concomitant]
  7. MULTIVITAMIN [Concomitant]

REACTIONS (3)
  - DIZZINESS [None]
  - DYSGEUSIA [None]
  - DYSPNOEA [None]
